FAERS Safety Report 6671084-5 (Version None)
Quarter: 2010Q2

REPORT INFORMATION
  Report Type: 
  Country: None (occurrence: None)
  Receive Date: 20100407
  Receipt Date: 20100324
  Transmission Date: 20101027
  Serious: Yes (Death, Other)
  Sender: FDA-Public Use
  Company Number: DE-WATSON-2010-04241

PATIENT
  Age: 52 Year
  Sex: Female

DRUGS (3)
  1. CYCLOSPORINE [Suspect]
     Indication: VASCULITIS
     Dosage: 100 MG DAILY
     Dates: start: 19950301, end: 19961101
  2. METHYLPREDNISOLONE ACETATE [Suspect]
     Indication: VASCULITIS
     Dosage: 500 MG DAILY
     Route: 042
     Dates: start: 19950301, end: 19961101
  3. PREDNISOLONE [Suspect]
     Indication: VASCULITIS
     Dosage: 5-250 MG DAILY
     Dates: start: 19941101, end: 19961101

REACTIONS (2)
  - JC VIRUS INFECTION [None]
  - PROGRESSIVE MULTIFOCAL LEUKOENCEPHALOPATHY [None]
